FAERS Safety Report 6934889-9 (Version None)
Quarter: 2010Q3

REPORT INFORMATION
  Report Type: 
  Country: None (occurrence: None)
  Receive Date: 20100821
  Receipt Date: 20100806
  Transmission Date: 20110219
  Serious: Yes (Other)
  Sender: FDA-Public Use
  Company Number: PHHY2010JP49879

PATIENT
  Age: 17 Year
  Sex: Male

DRUGS (3)
  1. TEGRETOL [Suspect]
     Indication: TRIGEMINAL NEURALGIA
     Dosage: 200 MG DAILY
     Route: 048
     Dates: start: 20091218
  2. TEGRETOL [Suspect]
     Dosage: 100 MG DAILY
     Route: 048
     Dates: start: 20100108
  3. TEGRETOL [Suspect]
     Dosage: 50 MG DAILY
     Route: 048
     Dates: start: 20100428

REACTIONS (1)
  - BLOOD CREATINE PHOSPHOKINASE INCREASED [None]
